FAERS Safety Report 19007374 (Version 1)
Quarter: 2021Q1

REPORT INFORMATION
  Report Type: Spontaneous
  Country: US (occurrence: US)
  Receive Date: 20210315
  Receipt Date: 20210315
  Transmission Date: 20210420
  Serious: Yes (Other)
  Sender: FDA-Public Use
  Company Number: None

PATIENT
  Age: 65 Year
  Sex: Female
  Weight: 55.8 kg

DRUGS (5)
  1. VIT D [Concomitant]
     Active Substance: VITAMIN D NOS
  2. RAMIPRIL. [Concomitant]
     Active Substance: RAMIPRIL
  3. MULTIVITAMIN [Concomitant]
     Active Substance: VITAMINS
  4. RECLAST [Suspect]
     Active Substance: ZOLEDRONIC ACID
     Indication: OSTEOPOROSIS
     Dates: start: 20210224, end: 20210224
  5. CALCIUM [Concomitant]
     Active Substance: CALCIUM

REACTIONS (6)
  - Corneal oedema [None]
  - Myalgia [None]
  - Arthralgia [None]
  - Migraine with aura [None]
  - Joint swelling [None]
  - Uveitis [None]

NARRATIVE: CASE EVENT DATE: 20210224
